FAERS Safety Report 25584546 (Version 1)
Quarter: 2025Q3

REPORT INFORMATION
  Report Type: Spontaneous
  Country: EU (occurrence: EU)
  Receive Date: 20250721
  Receipt Date: 20250721
  Transmission Date: 20251021
  Serious: Yes (Hospitalization, Other)
  Sender: AUROBINDO
  Company Number: EU-AEMPS-1721350

PATIENT
  Age: 87 Year
  Sex: Female
  Weight: 43.7 kg

DRUGS (4)
  1. DOXAZOSIN [Interacting]
     Active Substance: DOXAZOSIN MESYLATE
     Indication: Hypertension
     Dosage: 4 MILLIGRAM, ONCE A DAY (4MG 1-0-0)
     Route: 048
     Dates: start: 20250121, end: 20250616
  2. TELMISARTAN [Interacting]
     Active Substance: TELMISARTAN
     Indication: Hypertension
     Dosage: 160 MILLIGRAM, ONCE A DAY (80MG 2-0-0)
     Route: 048
     Dates: start: 20250213, end: 20250616
  3. AMLODIPINE [Interacting]
     Active Substance: AMLODIPINE BESYLATE
     Indication: Hypertension
     Dosage: 10 MILLIGRAM, ONCE A DAY (10MG 0-0-1)
     Route: 048
     Dates: start: 20250121, end: 20250616
  4. FUROSEMIDE [Interacting]
     Active Substance: FUROSEMIDE
     Indication: Cardiac failure acute
     Dosage: 40 MILLIGRAM, ONCE A DAY (40MG 1-1-0)
     Route: 048
     Dates: start: 20250603, end: 20250606

REACTIONS (1)
  - Acute kidney injury [Recovering/Resolving]

NARRATIVE: CASE EVENT DATE: 20250616
